FAERS Safety Report 23453873 (Version 2)
Quarter: 2024Q1

REPORT INFORMATION
  Report Type: Report from Study
  Country: PR (occurrence: PR)
  Receive Date: 20240129
  Receipt Date: 20240202
  Transmission Date: 20240409
  Serious: Yes (Other)
  Sender: FDA-Public Use
  Company Number: PR-ABBVIE-5611561

PATIENT
  Sex: Male
  Weight: 80 kg

DRUGS (1)
  1. SKYRIZI [Suspect]
     Active Substance: RISANKIZUMAB-RZAA
     Indication: Psoriasis
     Dosage: STOP DATE TEXT: INTERRUPTED
     Route: 058
     Dates: start: 20190823

REACTIONS (2)
  - Limb injury [Recovering/Resolving]
  - Depression [Not Recovered/Not Resolved]

NARRATIVE: CASE EVENT DATE: 20240101
